FAERS Safety Report 9207735 (Version 1)
Quarter: 2013Q2

REPORT INFORMATION
  Report Type: Report from Study
  Country: GB (occurrence: GB)
  Receive Date: 20130403
  Receipt Date: 20130403
  Transmission Date: 20140414
  Serious: Yes (Other)
  Sender: FDA-Public Use
  Company Number: GB-BRISTOL-MYERS SQUIBB COMPANY-16197451

PATIENT
  Age: 46 Year
  Sex: Female

DRUGS (26)
  1. ETOPOSIDE [Suspect]
     Indication: ACUTE MYELOID LEUKAEMIA
     Dates: start: 20110819, end: 20110828
  2. ETOPOSIDE [Suspect]
     Indication: MYELODYSPLASTIC SYNDROME
     Dates: start: 20110819, end: 20110828
  3. MYLOTARG [Suspect]
     Indication: ACUTE MYELOID LEUKAEMIA
     Dosage: 19AUG2011:5 MG DOSE ALSO TAKEN.
     Dates: start: 20110819, end: 20110828
  4. MYLOTARG [Suspect]
     Indication: MYELODYSPLASTIC SYNDROME
     Dosage: 19AUG2011:5 MG DOSE ALSO TAKEN.
     Dates: start: 20110819, end: 20110828
  5. CYTARABINE [Suspect]
     Indication: ACUTE MYELOID LEUKAEMIA
     Dates: start: 20110819, end: 20110828
  6. CYTARABINE [Suspect]
     Indication: MYELODYSPLASTIC SYNDROME
     Dates: start: 20110819, end: 20110828
  7. DAUNORUBICIN [Suspect]
     Indication: ACUTE MYELOID LEUKAEMIA
     Dates: start: 20110819, end: 20110828
  8. DAUNORUBICIN [Suspect]
     Indication: MYELODYSPLASTIC SYNDROME
     Dates: start: 20110819, end: 20110828
  9. NORETHISTERONE [Suspect]
     Dates: start: 20110818
  10. TAZOCIN [Suspect]
     Dosage: 25AUG11
     Dates: start: 20110822, end: 20110909
  11. VANCOMYCIN [Suspect]
     Dates: start: 20110904, end: 20110909
  12. MEROPENEM [Suspect]
     Dosage: SOLN FOR INJ
     Route: 042
     Dates: start: 20110905, end: 20110910
  13. AMBISOME [Suspect]
     Dosage: INJECTION
     Route: 042
     Dates: start: 20110831, end: 20110831
  14. ALLOPURINOL [Concomitant]
     Route: 048
     Dates: start: 20110828, end: 20110908
  15. DOCUSATE SODIUM [Concomitant]
     Route: 048
     Dates: start: 20110823, end: 20110914
  16. CYCLIZINE [Concomitant]
     Route: 042
     Dates: start: 20110903, end: 20110914
  17. ACICLOVIR [Concomitant]
     Route: 048
  18. RANITIDINE [Concomitant]
     Dates: start: 20110908, end: 20110912
  19. OMEPRAZOLE [Concomitant]
     Dates: start: 20110820, end: 20110908
  20. TRANEXAMIC ACID [Concomitant]
     Route: 048
     Dates: start: 20110831, end: 20110908
  21. ANTI-D IMMUNOGLOBULIN [Concomitant]
     Route: 058
     Dates: start: 20110902, end: 20110902
  22. LORAZEPAM [Concomitant]
     Route: 048
     Dates: start: 20110914, end: 20110914
  23. ONDANSETRON [Concomitant]
     Route: 048
     Dates: start: 20110822, end: 20110828
  24. PARACETAMOL [Concomitant]
     Route: 048
     Dates: start: 20110817, end: 20110820
  25. CODEINE [Concomitant]
     Route: 048
     Dates: start: 20110817, end: 20110820
  26. ORAMORPH [Concomitant]
     Dosage: DF=5-10MG
     Route: 042
     Dates: start: 20110822, end: 20110823

REACTIONS (2)
  - Alanine aminotransferase increased [Recovered/Resolved]
  - Platelet count increased [Recovered/Resolved]
